FAERS Safety Report 15178489 (Version 3)
Quarter: 2018Q3

REPORT INFORMATION
  Report Type: Spontaneous
  Country: US (occurrence: US)
  Receive Date: 20180722
  Receipt Date: 20180927
  Transmission Date: 20181010
  Serious: No
  Sender: FDA-Public Use
  Company Number: US-JNJFOC-20180703602

PATIENT
  Age: 39 Year
  Sex: Male
  Weight: 81.65 kg

DRUGS (2)
  1. MENS ROGAINE EXTRA STRENGTH [Suspect]
     Active Substance: MINOXIDIL
     Route: 061
  2. MENS ROGAINE EXTRA STRENGTH [Suspect]
     Active Substance: MINOXIDIL
     Indication: ALOPECIA
     Route: 061
     Dates: end: 20180801

REACTIONS (6)
  - Pain of skin [Not Recovered/Not Resolved]
  - Product administered at inappropriate site [Unknown]
  - Product use in unapproved indication [Unknown]
  - Expired product administered [Unknown]
  - Erythema [Not Recovered/Not Resolved]
  - Alopecia [Recovering/Resolving]

NARRATIVE: CASE EVENT DATE: 20180201
